FAERS Safety Report 23439657 (Version 2)
Quarter: 2025Q4

REPORT INFORMATION
  Report Type: Spontaneous
  Country: US (occurrence: US)
  Receive Date: 20240124
  Receipt Date: 20251013
  Transmission Date: 20260118
  Serious: Yes (Other)
  Sender: KYOWA
  Company Number: US-KYOWAKIRIN-2024KK001016

PATIENT

DRUGS (15)
  1. NOURIANZ [Suspect]
     Active Substance: ISTRADEFYLLINE
     Indication: Parkinson^s disease
     Dosage: 40 MG, QD
     Route: 048
     Dates: start: 20210903
  2. NOURIANZ [Suspect]
     Active Substance: ISTRADEFYLLINE
     Dosage: 40 MG, QD (TAKE 1 TABLET BY MOUTH ONCE DAILY)
     Route: 048
     Dates: start: 20211027
  3. NOURIANZ [Concomitant]
     Active Substance: ISTRADEFYLLINE
     Indication: Product used for unknown indication
     Dosage: UNK
     Route: 065
  4. TAMSULOSIN [Concomitant]
     Active Substance: TAMSULOSIN
     Indication: Product used for unknown indication
     Dosage: 0.4 MG
     Route: 065
  5. SINEMET CR [Concomitant]
     Active Substance: CARBIDOPA\LEVODOPA
     Indication: Product used for unknown indication
     Dosage: UNK 25-100 MG
     Route: 065
  6. STALEVO [Concomitant]
     Active Substance: CARBIDOPA\ENTACAPONE\LEVODOPA
     Indication: Product used for unknown indication
     Dosage: 150 UNK
     Route: 065
  7. RYTARY [Concomitant]
     Active Substance: CARBIDOPA\LEVODOPA
     Indication: Product used for unknown indication
     Dosage: UNK
     Route: 065
  8. LINZESS [Concomitant]
     Active Substance: LINACLOTIDE
     Indication: Product used for unknown indication
     Dosage: UNK
     Route: 065
  9. LEVOTHYROXINE [Concomitant]
     Active Substance: LEVOTHYROXINE
     Indication: Product used for unknown indication
     Dosage: UNK
     Route: 065
  10. PANTOPRAZOLE [Concomitant]
     Active Substance: PANTOPRAZOLE
     Indication: Product used for unknown indication
     Dosage: UNK
     Route: 065
  11. CALCIUM [Concomitant]
     Active Substance: CALCIUM
     Indication: Product used for unknown indication
     Dosage: 600 MG
     Route: 065
  12. PROBIOTICS NOS [Concomitant]
     Active Substance: PROBIOTICS NOS
     Indication: Product used for unknown indication
     Dosage: UNK
     Route: 065
  13. VITAMIN D NOS [Concomitant]
     Active Substance: CHOLECALCIFEROL\ERGOCALCIFEROL
     Indication: Product used for unknown indication
     Dosage: 1000 IU (SOFTGELS)
     Route: 065
  14. MAGNESIUM OXIDE [Concomitant]
     Active Substance: MAGNESIUM OXIDE
     Indication: Product used for unknown indication
     Dosage: 400 MG
     Route: 065
  15. CENTRUM SILVER [ASCORBIC ACID;CALCIUM;MINERALS NOS;RETINOL;TOCOPHERYL [Concomitant]
     Indication: Product used for unknown indication
     Dosage: UNK
     Route: 065

REACTIONS (3)
  - Hallucination [Not Recovered/Not Resolved]
  - Hallucination [Not Recovered/Not Resolved]
  - Hypersomnia [Not Recovered/Not Resolved]

NARRATIVE: CASE EVENT DATE: 20240103
